FAERS Safety Report 23280391 (Version 1)
Quarter: 2023Q4

REPORT INFORMATION
  Report Type: Spontaneous
  Country: CN (occurrence: CN)
  Receive Date: 20231211
  Receipt Date: 20231211
  Transmission Date: 20240109
  Serious: Yes (Hospitalization)
  Sender: FDA-Public Use
  Company Number: CN-BoehringerIngelheim-2023-BI-277074

PATIENT
  Age: 56 Year
  Sex: Female

DRUGS (2)
  1. AFATINIB [Suspect]
     Active Substance: AFATINIB
     Indication: Lung adenocarcinoma
  2. AFATINIB [Suspect]
     Active Substance: AFATINIB
     Indication: EGFR gene mutation

REACTIONS (5)
  - Symmetrical drug-related intertriginous and flexural exanthema [Recovering/Resolving]
  - Impaired quality of life [Recovering/Resolving]
  - Hepatic cyst [Recovering/Resolving]
  - Gallbladder polyp [Recovering/Resolving]
  - Pulmonary mass [Recovering/Resolving]
